FAERS Safety Report 19745586 (Version 1)
Quarter: 2021Q3

REPORT INFORMATION
  Report Type: Spontaneous
  Country: FI (occurrence: FI)
  Receive Date: 20210825
  Receipt Date: 20210825
  Transmission Date: 20211014
  Serious: Yes (Hospitalization)
  Sender: FDA-Public Use
  Company Number: FI-ROCHE-2895136

PATIENT
  Age: 64 Year
  Sex: Female
  Weight: 60 kg

DRUGS (11)
  1. RITUXIMAB. [Suspect]
     Active Substance: RITUXIMAB
     Indication: FOLLICULAR LYMPHOMA STAGE III
     Dosage: 375 MILLIGRAM/SQ. METER, SINGLE
     Route: 042
     Dates: start: 20210601, end: 20210601
  2. PARACETAMOL [Concomitant]
     Active Substance: ACETAMINOPHEN
     Route: 048
     Dates: start: 20210601, end: 20210601
  3. PARACETAMOL [Concomitant]
     Active Substance: ACETAMINOPHEN
     Dates: start: 20210626
  4. CETIRIZINE [Concomitant]
     Active Substance: CETIRIZINE HYDROCHLORIDE
     Route: 048
     Dates: start: 20210601, end: 20210601
  5. INNOHEP [Concomitant]
     Active Substance: TINZAPARIN SODIUM
     Dates: start: 20210318
  6. FLUCONAZOLE. [Concomitant]
     Active Substance: FLUCONAZOLE
     Dates: start: 20210609
  7. NYSTATINE [Concomitant]
     Active Substance: NYSTATIN
     Dates: start: 20210608, end: 20210611
  8. LENALIDOMIDE [Suspect]
     Active Substance: LENALIDOMIDE
     Indication: FOLLICULAR LYMPHOMA STAGE III
     Dosage: STRENGTH: 20 MILLIGRAM, QD
     Route: 048
     Dates: start: 20210525, end: 20210601
  9. PREDNISOLONE. [Suspect]
     Active Substance: PREDNISOLONE
     Indication: CYTOKINE RELEASE SYNDROME
     Dosage: STRENGTH: 100 MILLIGRAM, QD
     Route: 048
     Dates: start: 20210525, end: 20210528
  10. VALACICLOVIR [Concomitant]
     Active Substance: VALACYCLOVIR HYDROCHLORIDE
     Dates: start: 20210609
  11. RITUXIMAB. [Suspect]
     Active Substance: RITUXIMAB
     Dosage: 375 MILLIGRAM/SQ. METER, SINGLE
     Route: 042
     Dates: start: 20210525, end: 20210525

REACTIONS (2)
  - Mania [Recovered/Resolved]
  - Cytokine release syndrome [Recovered/Resolved]

NARRATIVE: CASE EVENT DATE: 20210605
